FAERS Safety Report 8081752-9 (Version None)
Quarter: 2012Q1

REPORT INFORMATION
  Report Type: 
  Country: None (occurrence: None)
  Receive Date: 20120130
  Receipt Date: 20120124
  Transmission Date: 20120608
  Serious: Yes (Death)
  Sender: FDA-Public Use
  Company Number: JP-ELI_LILLY_AND_COMPANY-JP201112006089

PATIENT
  Sex: Male
  Weight: 74.6 kg

DRUGS (12)
  1. THEO-DUR [Concomitant]
     Dosage: 400 MG, UNK
     Route: 048
  2. CISPLATIN [Concomitant]
     Indication: LUNG ADENOCARCINOMA STAGE IV
     Dosage: 130 MG, OTHER
     Route: 042
     Dates: start: 20111212, end: 20111212
  3. MUCOSTA [Concomitant]
     Dosage: 300 MG, UNK
     Route: 048
  4. CYANOCOBALAMIN [Concomitant]
     Dosage: 1 MG, UNK
     Route: 030
     Dates: start: 20111205
  5. OXYGEN [Concomitant]
     Dosage: 8 L, UNK
     Route: 055
     Dates: start: 20111216, end: 20111230
  6. ALLEGRA [Concomitant]
     Dosage: 120 MG, UNK
     Route: 048
  7. OXYGEN [Concomitant]
     Dosage: 1 UNK, UNK
     Route: 055
     Dates: start: 20111123, end: 20111215
  8. MUCOSOLVAN [Concomitant]
     Dosage: 45 MG, UNK
     Route: 048
  9. NAPROXEN [Concomitant]
     Dosage: 300 MG, UNK
     Route: 048
  10. ALIMTA [Suspect]
     Indication: LUNG ADENOCARCINOMA STAGE IV
     Dosage: 900 MG, OTHER
     Route: 042
     Dates: start: 20111212, end: 20111212
  11. PANVITAN [Concomitant]
     Dosage: 1 G, UNK
     Route: 065
     Dates: start: 20111205
  12. MUCODYNE [Concomitant]
     Dosage: 1500 MG, UNK
     Route: 048

REACTIONS (2)
  - INTERSTITIAL LUNG DISEASE [None]
  - MELAENA [None]
